FAERS Safety Report 24593677 (Version 1)
Quarter: 2024Q4

REPORT INFORMATION
  Report Type: Spontaneous
  Country: CN (occurrence: CN)
  Receive Date: 20241108
  Receipt Date: 20241108
  Transmission Date: 20250114
  Serious: Yes (Other)
  Sender: BAXTER
  Company Number: None

PATIENT
  Age: 32 Year
  Sex: Female
  Weight: 120 kg

DRUGS (5)
  1. CYCLOPHOSPHAMIDE [Suspect]
     Active Substance: CYCLOPHOSPHAMIDE
     Indication: Breast cancer
     Dosage: 1.3 G, ONE TIME IN ONE DAY, D1, DILUTED WITH 50 ML OF 0.9% SODIUM CHLORIDE
     Route: 041
     Dates: start: 20241025, end: 20241025
  2. SODIUM CHLORIDE [Suspect]
     Active Substance: SODIUM CHLORIDE
     Indication: Medication dilution
     Dosage: (0.9%) 50 ML, ONE TIME IN ONE DAY, D1, USED TO DILUTE 1.3 G OF CYCLOPHOSPHAMIDE
     Route: 041
     Dates: start: 20241025, end: 20241025
  3. SODIUM CHLORIDE [Suspect]
     Active Substance: SODIUM CHLORIDE
     Dosage: (0.9 %) 100 ML SODIUM CHLORIDE, 50 ML STERILE WATER, ONE TIME IN ONE DAY, D1, USED TO DILUTE 200 MG
     Route: 041
     Dates: start: 20241025, end: 20241025
  4. EPIRUBICIN HYDROCHLORIDE [Suspect]
     Active Substance: EPIRUBICIN HYDROCHLORIDE
     Indication: Breast cancer
     Dosage: 200 MG, ONE TIME IN ONE DAY, D1, DILUTED WITH 50 ML OF STERILE WATER AND 100 ML OF 0.9% SODIUM CHLOR
     Route: 041
     Dates: start: 20241025, end: 20241025
  5. STERILE WATER [Suspect]
     Active Substance: WATER
     Indication: Medication dilution
     Dosage: 50 ML STERILE WATER, 0.9 % 100 ML SODIUM CHLORIDE, ONE TIME IN ONE DAY, D1, USED TO DILUTE 200 MG OF
     Route: 041
     Dates: start: 20241025, end: 20241025

REACTIONS (2)
  - Vomiting [Recovered/Resolved]
  - Nausea [Unknown]

NARRATIVE: CASE EVENT DATE: 20241025
